FAERS Safety Report 17362391 (Version 1)
Quarter: 2020Q1

REPORT INFORMATION
  Report Type: Spontaneous
  Country: US (occurrence: US)
  Receive Date: 20200203
  Receipt Date: 20200203
  Transmission Date: 20200409
  Serious: Yes (Other)
  Sender: FDA-Public Use
  Company Number: US-SHIRE-US202003108

PATIENT
  Sex: Female

DRUGS (1)
  1. XIIDRA [Suspect]
     Active Substance: LIFITEGRAST
     Indication: DRY EYE
     Dosage: UNK
     Route: 047
     Dates: start: 2018

REACTIONS (7)
  - Insomnia [Unknown]
  - Vision blurred [Unknown]
  - Dizziness [Unknown]
  - Aortic occlusion [Unknown]
  - Drug interaction [Unknown]
  - Eye irritation [Unknown]
  - Eye pain [Unknown]
